FAERS Safety Report 4599712-9 (Version None)
Quarter: 2005Q1

REPORT INFORMATION
  Report Type: 
  Country: None (occurrence: None)
  Receive Date: 20050307
  Receipt Date: 20050222
  Transmission Date: 20050727
  Serious: Yes (Death)
  Sender: FDA-Public Use
  Company Number: US-JNJFOC-20050107172

PATIENT
  Sex: Female

DRUGS (6)
  1. DOXIL [Suspect]
     Dosage: 40MG X2 CYCLES
     Route: 042
  2. DOXIL [Suspect]
     Indication: MULTIPLE MYELOMA
     Route: 042
  3. ZOMETA [Concomitant]
  4. EPOGEN [Concomitant]
  5. VANCOMYCIN [Concomitant]
     Route: 049
  6. ANZEMET [Concomitant]
     Dosage: 100MG X3 DOSES, PRE-CHEMOTHERAPY

REACTIONS (1)
  - MYOCARDIAL INFARCTION [None]
